FAERS Safety Report 17655632 (Version 1)
Quarter: 2020Q2

REPORT INFORMATION
  Report Type: Spontaneous
  Country: US (occurrence: US)
  Receive Date: 20200409
  Receipt Date: 20200409
  Transmission Date: 20200713
  Serious: Yes (Hospitalization)
  Sender: FDA-Public Use
  Company Number: None

PATIENT
  Age: 37 Year
  Sex: Male

DRUGS (1)
  1. DEFERASIROX 360MG ZYDUS PHARMACEUTICALS (USA) [Suspect]
     Active Substance: DEFERASIROX
     Dosage: ?          OTHER FREQUENCY:OTHER; 4 TSBS = 360 MG?
     Route: 048
     Dates: start: 20200104

REACTIONS (1)
  - Kidney infection [None]

NARRATIVE: CASE EVENT DATE: 20200327
